FAERS Safety Report 13450073 (Version 1)
Quarter: 2017Q2

REPORT INFORMATION
  Report Type: Spontaneous
  Country: US (occurrence: US)
  Receive Date: 20170417
  Receipt Date: 20170417
  Transmission Date: 20170830
  Serious: No
  Sender: FDA-Public Use
  Company Number: US-BION-20160607

PATIENT
  Age: 68 Year
  Sex: Male
  Weight: 104.33 kg

DRUGS (4)
  1. UNKNOWN MULTIVITAMIN [Concomitant]
     Active Substance: VITAMINS
  2. POMALYST [Concomitant]
     Active Substance: POMALIDOMIDE
  3. COUMADIN [Concomitant]
     Active Substance: WARFARIN SODIUM
  4. ALEVE [Suspect]
     Active Substance: NAPROXEN SODIUM
     Dosage: 6 DF
     Route: 048
     Dates: start: 20161006, end: 20161012

REACTIONS (3)
  - Off label use [Unknown]
  - Prescribed overdose [Unknown]
  - Expired product administered [Unknown]

NARRATIVE: CASE EVENT DATE: 20161006
